FAERS Safety Report 8420897-8 (Version None)
Quarter: 2012Q2

REPORT INFORMATION
  Report Type: 
  Country: None (occurrence: None)
  Receive Date: 20120608
  Receipt Date: 20120606
  Transmission Date: 20120825
  Serious: Yes (Other)
  Sender: FDA-Public Use
  Company Number: US-BAYER-2012-056440

PATIENT
  Age: 38 Year
  Sex: Female

DRUGS (1)
  1. YASMIN [Suspect]
     Dosage: UNK
     Dates: start: 20071101, end: 20080401

REACTIONS (7)
  - INJURY [None]
  - NERVOUSNESS [None]
  - PAIN [None]
  - THROMBOSIS [None]
  - DEPRESSION [None]
  - EMOTIONAL DISTRESS [None]
  - FEAR OF DEATH [None]
